FAERS Safety Report 17914801 (Version 1)
Quarter: 2020Q2

REPORT INFORMATION
  Report Type: Spontaneous
  Country: US (occurrence: US)
  Receive Date: 20200618
  Receipt Date: 20200618
  Transmission Date: 20200714
  Serious: Yes (Hospitalization)
  Sender: FDA-Public Use
  Company Number: US-BIOMARINAP-US-2020-130720

PATIENT
  Sex: Female
  Weight: 142 kg

DRUGS (1)
  1. KUVAN [Suspect]
     Active Substance: SAPROPTERIN DIHYDROCHLORIDE
     Indication: PHENYLKETONURIA
     Dosage: UNK UNK, QD
     Route: 048

REACTIONS (6)
  - Lipoedema [Unknown]
  - Nausea [Unknown]
  - Oral discomfort [Unknown]
  - Cardiac disorder [Unknown]
  - Phenylketonuria [Unknown]
  - Product dose omission [Unknown]
